FAERS Safety Report 25949824 (Version 1)
Quarter: 2025Q4

REPORT INFORMATION
  Report Type: Spontaneous
  Country: EU (occurrence: EU)
  Receive Date: 20251022
  Receipt Date: 20251022
  Transmission Date: 20260119
  Serious: Yes (Hospitalization, Other)
  Sender: PFIZER
  Company Number: None

PATIENT
  Age: 29 Year
  Sex: Female

DRUGS (6)
  1. NAFARELIN ACETATE [Suspect]
     Active Substance: NAFARELIN ACETATE
     Indication: Assisted reproductive technology
     Dosage: 0.4 MG, 1X/DAY
     Dates: start: 20250715, end: 20250804
  2. NAFARELIN ACETATE [Suspect]
     Active Substance: NAFARELIN ACETATE
     Dosage: 0.2 MG
     Dates: start: 20250805
  3. FOLLITROPIN ALFA [Suspect]
     Active Substance: FOLLITROPIN ALFA
     Indication: Assisted reproductive technology
     Dosage: 200 IU, 1X/DAY
     Dates: start: 20250726, end: 20250729
  4. FOLLITROPIN ALFA [Suspect]
     Active Substance: FOLLITROPIN ALFA
     Dosage: 250 IU, 1X/DAY
     Dates: start: 20250730, end: 20250803
  5. FOLLITROPIN ALFA [Suspect]
     Active Substance: FOLLITROPIN ALFA
     Dosage: 225 IU
     Dates: start: 20250804
  6. CHORIOGONADOTROPIN ALFA [Suspect]
     Active Substance: CHORIOGONADOTROPIN ALFA
     Indication: Assisted reproductive technology
     Dosage: 250 UG
     Dates: start: 20250805

REACTIONS (3)
  - Dyspnoea exertional [Recovered/Resolved]
  - Abdominal pain [Recovered/Resolved]
  - Ovarian hyperstimulation syndrome [Recovered/Resolved]

NARRATIVE: CASE EVENT DATE: 20250819
